FAERS Safety Report 25765695 (Version 4)
Quarter: 2025Q4

REPORT INFORMATION
  Report Type: Report from Study
  Country: CA (occurrence: CA)
  Receive Date: 20250905
  Receipt Date: 20251031
  Transmission Date: 20260119
  Serious: Yes (Disabling, Other)
  Sender: CELLTRION
  Company Number: CA-CELLTRION INC.-2025CA031310

PATIENT

DRUGS (3)
  1. INFLIXIMAB-DYYB [Suspect]
     Active Substance: INFLIXIMAB-DYYB
     Indication: Crohn^s disease
     Dosage: LOADING - 650 MG - WEEK 0,2,6
     Route: 042
     Dates: start: 20250815
  2. DEXLANSOPRAZOLE [Concomitant]
     Active Substance: DEXLANSOPRAZOLE
     Indication: Product used for unknown indication
     Dosage: 60 MG/ DAY
     Route: 065
     Dates: start: 2018
  3. VENLAFAXINE [Concomitant]
     Active Substance: VENLAFAXINE HYDROCHLORIDE
     Indication: Product used for unknown indication
     Dosage: CL XR 75 MG/DAY
     Route: 065
     Dates: start: 2006

REACTIONS (7)
  - Inflammation [Recovering/Resolving]
  - Joint swelling [Recovering/Resolving]
  - Muscular weakness [Recovering/Resolving]
  - Serum sickness [Recovering/Resolving]
  - Arthralgia [Recovering/Resolving]
  - Fatigue [Recovering/Resolving]
  - Underdose [Unknown]

NARRATIVE: CASE EVENT DATE: 20250101
